FAERS Safety Report 5099185-6 (Version None)
Quarter: 2006Q3

REPORT INFORMATION
  Report Type: 
  Country: None (occurrence: None)
  Receive Date: 20060728
  Receipt Date: 20060329
  Transmission Date: 20061208
  Serious: No
  Sender: FDA-Public Use
  Company Number: COT_0548_2006

PATIENT
  Age: 73 Year
  Sex: Female
  Weight: 66.2252 kg

DRUGS (13)
  1. VENTAVIS [Suspect]
     Indication: PULMONARY HYPERTENSION
     Dosage: 5 MCG 6XD IH
     Route: 055
     Dates: start: 20051116
  2. COZAAR [Concomitant]
  3. PRAVACHOL [Concomitant]
  4. ZETIA [Concomitant]
  5. NEURONTIN [Concomitant]
  6. AMITRIPTYLINE HYDROCHLORIDE [Concomitant]
  7. NORVASC [Concomitant]
  8. TRACLEER [Concomitant]
  9. LANTUS [Concomitant]
  10. HUMALOG [Concomitant]
  11. DIGOXIN [Concomitant]
  12. OXYGEN [Concomitant]
  13. FLEXERIL [Concomitant]

REACTIONS (2)
  - SYNCOPE [None]
  - THROAT IRRITATION [None]
